FAERS Safety Report 14434249 (Version 1)
Quarter: 2018Q1

REPORT INFORMATION
  Report Type: Other
  Country: US (occurrence: US)
  Receive Date: 20180124
  Receipt Date: 20180124
  Transmission Date: 20180509
  Serious: Yes (Hospitalization)
  Sender: FDA-Public Use
  Company Number: US-B. BRAUN MEDICAL INC.-2040742

PATIENT
  Age: 11 Year
  Sex: Female

DRUGS (1)
  1. CEFTRIAXONE AND DEXTROSE [Suspect]
     Active Substance: CEFTRIAXONE SODIUM
     Route: 042

REACTIONS (2)
  - Autoimmune haemolytic anaemia [None]
  - Acute kidney injury [None]
